FAERS Safety Report 6419704-4 (Version None)
Quarter: 2009Q4

REPORT INFORMATION
  Report Type: 
  Country: None (occurrence: None)
  Receive Date: 20091013
  Receipt Date: 20090811
  Transmission Date: 20100525
  Serious: No
  Sender: FDA-Public Use
  Company Number: 2009BM000189

PATIENT
  Age: 10 Year
  Sex: Female
  Weight: 43.0917 kg

DRUGS (2)
  1. KUVAN [Suspect]
     Indication: PHENYLKETONURIA
     Dosage: 900 MG/KG;QD;PO
     Route: 048
     Dates: start: 20090501, end: 20090802
  2. KUVAN [Suspect]
     Indication: PHENYLKETONURIA
     Dosage: 900 MG/KG;QD;PO
     Route: 048
     Dates: start: 20090805

REACTIONS (5)
  - DIARRHOEA [None]
  - GASTROENTERITIS VIRAL [None]
  - HEADACHE [None]
  - MALAISE [None]
  - VOMITING [None]
